FAERS Safety Report 9868999 (Version 1)
Quarter: 2014Q1

REPORT INFORMATION
  Report Type: Spontaneous
  Country: US (occurrence: US)
  Receive Date: 20140205
  Receipt Date: 20140205
  Transmission Date: 20141002
  Serious: Yes (Other)
  Sender: FDA-Public Use
  Company Number: US-AMGEN-USASP2014006515

PATIENT
  Age: 65 Year
  Sex: Female

DRUGS (13)
  1. ENBREL [Suspect]
     Indication: PRODUCT USED FOR UNKNOWN INDICATION
     Dosage: UNK
     Route: 065
  2. HUMIRA [Suspect]
     Indication: RHEUMATOID ARTHRITIS
     Dosage: 40 MG, Q2WK
     Route: 065
  3. ASA [Concomitant]
     Dosage: 81 MG, QD
  4. CELEXA                             /00582602/ [Concomitant]
     Indication: DEPRESSION
     Dosage: 40 MG, QD
  5. XANAX [Concomitant]
     Indication: DEPRESSION
     Dosage: 0.25 MG, 3 IN 1 D
  6. METHOTREXATE [Concomitant]
     Indication: RHEUMATOID ARTHRITIS
     Dosage: 2.5 MG, 8 IN 1 WK
  7. GABAPENTIN [Concomitant]
     Indication: FIBROMYALGIA
     Dosage: 400 MG, 2 IN 1D
  8. SULFASALAZINE [Concomitant]
     Indication: RHEUMATOID ARTHRITIS
     Dosage: 500 MG, 2 IN 1D
  9. CARDIZEM                           /00489701/ [Concomitant]
     Indication: HYPERTENSION
     Dosage: 50 MG, QD
  10. HCTZ [Concomitant]
     Indication: HYPERTENSION
     Dosage: 25 MG, QD
  11. ZYRTEC [Concomitant]
     Indication: HYPERSENSITIVITY
     Dosage: 10 MG, QD
  12. LIDODERM [Concomitant]
     Indication: PAIN
     Dosage: UNK UNK, AS NECESSARY
  13. HYDROCODONE [Concomitant]
     Indication: PAIN
     Dosage: 500 MG, 3 IN 1D

REACTIONS (12)
  - Transient ischaemic attack [Unknown]
  - Headache [Unknown]
  - Nausea [Unknown]
  - Presyncope [Unknown]
  - Skin burning sensation [Unknown]
  - Cold sweat [Unknown]
  - Somnolence [Unknown]
  - Asthenia [Unknown]
  - Arthralgia [Unknown]
  - Mass [Unknown]
  - Joint swelling [Unknown]
  - Joint range of motion decreased [Unknown]
